FAERS Safety Report 4354970-0 (Version None)
Quarter: 2004Q2

REPORT INFORMATION
  Report Type: 
  Country: None (occurrence: None)
  Receive Date: 20040510
  Receipt Date: 20040503
  Transmission Date: 20050107
  Serious: Yes (Other)
  Sender: FDA-Public Use
  Company Number: 200413408US

PATIENT
  Sex: Male
  Weight: 69.5 kg

DRUGS (14)
  1. DOCETAXEL [Suspect]
     Indication: PANCREATIC CARCINOMA METASTATIC
     Route: 042
     Dates: start: 20040331, end: 20040421
  2. IRINOTECAN [Suspect]
     Indication: PANCREATIC CARCINOMA METASTATIC
     Route: 042
     Dates: start: 20040331, end: 20040421
  3. ZYDONE [Concomitant]
  4. SENOKOT [Concomitant]
  5. PANCREASE [Concomitant]
  6. ATIVAN [Concomitant]
     Dates: start: 20031120
  7. COMPAZINE [Concomitant]
     Dates: start: 20031120
  8. NORCO [Concomitant]
     Dates: start: 20031120
  9. GLYBURIDE [Concomitant]
  10. AMBIEN [Concomitant]
     Dates: start: 20031201
  11. ZOFRAN [Concomitant]
     Dates: start: 20040102
  12. DURAGESIC [Concomitant]
     Dates: start: 20031120
  13. DECADRON [Concomitant]
     Dates: start: 20040330
  14. KYTRIL [Concomitant]
     Dates: start: 20031120

REACTIONS (6)
  - BLOOD SODIUM DECREASED [None]
  - DIARRHOEA [None]
  - FATIGUE [None]
  - NEUTROPENIA [None]
  - NEUTROPHIL COUNT ABNORMAL [None]
  - WHITE BLOOD CELL COUNT ABNORMAL [None]
